FAERS Safety Report 8518186-6 (Version None)
Quarter: 2012Q3

REPORT INFORMATION
  Report Type: 
  Country: None (occurrence: None)
  Receive Date: 20120718
  Receipt Date: 20111102
  Transmission Date: 20120928
  Serious: No
  Sender: FDA-Public Use
  Company Number: US-BRISTOL-MYERS SQUIBB COMPANY-16185332

PATIENT
  Age: 75 Year
  Sex: Female

DRUGS (10)
  1. ALLOPURINOL [Concomitant]
  2. ASPIRIN [Concomitant]
  3. FUROSEMIDE [Concomitant]
  4. ZOLPIDEM [Concomitant]
  5. GABAPENTIN [Concomitant]
  6. CALCIUM [Concomitant]
  7. WARFARIN SODIUM [Suspect]
     Indication: ATRIAL FIBRILLATION
     Dosage: 6 DAYS EACH WEEK.
     Route: 048
     Dates: start: 20040101
  8. ENALAPRIL MALEATE [Concomitant]
  9. METFORMIN HYDROCHLORIDE [Concomitant]
  10. CARVEDILOL [Concomitant]

REACTIONS (1)
  - TONGUE BLISTERING [None]
